FAERS Safety Report 6240563-7 (Version None)
Quarter: 2009Q2

REPORT INFORMATION
  Report Type: 
  Country: None (occurrence: None)
  Receive Date: 20090623
  Receipt Date: 20080926
  Transmission Date: 20091009
  Serious: No
  Sender: FDA-Public Use
  Company Number: US-ASTRAZENECA-2008UW20474

PATIENT
  Age: 8 Year
  Sex: Female

DRUGS (2)
  1. PULMICORT-100 [Suspect]
     Indication: DYSPNOEA
     Dosage: .5MG/ML ONCE A DAY
     Route: 055
  2. PULMICORT-100 [Suspect]
     Dosage: .5MG/ML BID
     Route: 055

REACTIONS (4)
  - DRUG INEFFECTIVE [None]
  - DYSPNOEA [None]
  - EPISTAXIS [None]
  - INCREASED APPETITE [None]
